FAERS Safety Report 4675364-4 (Version None)
Quarter: 2005Q2

REPORT INFORMATION
  Report Type: 
  Country: None (occurrence: None)
  Receive Date: 20050527
  Receipt Date: 20050202
  Transmission Date: 20051028
  Serious: No
  Sender: FDA-Public Use
  Company Number: US-BRISTOL-MYERS SQUIBB COMPANY-12853776

PATIENT
  Sex: Female

DRUGS (1)
  1. ABILIFY [Suspect]
     Indication: BIPOLAR DISORDER
     Dosage: INITIATED AT 10 MG/DAY, INCREASED TO 15 MG/DAY, DECREASED TO 10 MG/DAY, THEN DISCONTINUED.

REACTIONS (3)
  - DRUG INEFFECTIVE [None]
  - MYDRIASIS [None]
  - PHOTOPHOBIA [None]
